FAERS Safety Report 4377541-9 (Version None)
Quarter: 2004Q2

REPORT INFORMATION
  Report Type: 
  Country: None (occurrence: None)
  Receive Date: 20040609
  Receipt Date: 20040422
  Transmission Date: 20050107
  Serious: No
  Sender: FDA-Public Use
  Company Number: PHEH2004US03874

PATIENT
  Age: 36 Year
  Sex: Female
  Weight: 65.3 kg

DRUGS (3)
  1. GLEEVEC [Suspect]
     Indication: CHRONIC MYELOID LEUKAEMIA
     Dosage: SEE IMAGE
     Dates: start: 20030401
  2. GLEEVEC [Suspect]
     Indication: CHRONIC MYELOID LEUKAEMIA
     Dosage: SEE IMAGE
     Route: 048
     Dates: start: 20040325
  3. GLEEVEC [Suspect]
     Indication: CHRONIC MYELOID LEUKAEMIA
     Dosage: SEE IMAGE
     Route: 048
     Dates: start: 20040326

REACTIONS (9)
  - ABDOMINAL DISTENSION [None]
  - BACK PAIN [None]
  - BLOOD IRON DECREASED [None]
  - DIARRHOEA [None]
  - FLUID RETENTION [None]
  - IRON DEFICIENCY ANAEMIA [None]
  - LOOSE STOOLS [None]
  - NAUSEA [None]
  - VOMITING [None]
